FAERS Safety Report 19257512 (Version 1)
Quarter: 2021Q2

REPORT INFORMATION
  Report Type: Spontaneous
  Country: UA (occurrence: UA)
  Receive Date: 20210513
  Receipt Date: 20210513
  Transmission Date: 20210717
  Serious: No
  Sender: FDA-Public Use
  Company Number: UA-LUPIN PHARMACEUTICALS INC.-2021-06834

PATIENT
  Age: 30 Year
  Sex: Female

DRUGS (9)
  1. MELOXICAM. [Suspect]
     Active Substance: MELOXICAM
     Indication: HYPERHIDROSIS
  2. DOXYCYCLINE. [Concomitant]
     Active Substance: DOXYCYCLINE
     Indication: PRODUCT USED FOR UNKNOWN INDICATION
     Dosage: UNK
     Route: 065
     Dates: start: 201704, end: 201705
  3. MELOXICAM. [Suspect]
     Active Substance: MELOXICAM
     Indication: BONE MARROW OEDEMA
  4. MELOXICAM. [Suspect]
     Active Substance: MELOXICAM
     Indication: BONE PAIN
     Dosage: UNK
     Route: 065
     Dates: start: 201704, end: 201705
  5. MELOXICAM. [Suspect]
     Active Substance: MELOXICAM
     Indication: PYREXIA
  6. METRONIDAZOLE. [Concomitant]
     Active Substance: METRONIDAZOLE
     Indication: PRODUCT USED FOR UNKNOWN INDICATION
     Dosage: UNK
     Route: 065
     Dates: start: 201704, end: 201705
  7. MELOXICAM. [Suspect]
     Active Substance: MELOXICAM
     Indication: ASTHENIA
  8. LINCOMYCIN. [Concomitant]
     Active Substance: LINCOMYCIN
     Indication: PRODUCT USED FOR UNKNOWN INDICATION
     Dosage: UNK
     Route: 065
     Dates: start: 201704, end: 201705
  9. CEFTRIAXONE. [Concomitant]
     Active Substance: CEFTRIAXONE
     Indication: PRODUCT USED FOR UNKNOWN INDICATION
     Dosage: UNK
     Route: 065
     Dates: start: 201704, end: 201705

REACTIONS (1)
  - Drug ineffective [Unknown]

NARRATIVE: CASE EVENT DATE: 2017
